FAERS Safety Report 15330371 (Version 1)
Quarter: 2018Q3

REPORT INFORMATION
  Report Type: Spontaneous
  Country: US (occurrence: US)
  Receive Date: 20180829
  Receipt Date: 20180829
  Transmission Date: 20181010
  Serious: No
  Sender: FDA-Public Use
  Company Number: US-SA-2018SA240370

PATIENT
  Sex: Male

DRUGS (4)
  1. LOTREL [LOTEPREDNOL ETABONATE] [Concomitant]
     Dosage: 10?20MG
  2. TRICOR [ADENOSINE] [Concomitant]
     Dosage: 145 MG
  3. PROTONIX [OMEPRAZOLE] [Concomitant]
     Dosage: 20 MG
  4. DUPIXENT [Suspect]
     Active Substance: DUPILUMAB
     Indication: DERMATITIS ATOPIC
     Dosage: 300 MG, QOW
     Route: 058
     Dates: start: 201711

REACTIONS (2)
  - Fatigue [Unknown]
  - Arthralgia [Unknown]
